FAERS Safety Report 9329723 (Version 1)
Quarter: 2013Q2

REPORT INFORMATION
  Report Type: Spontaneous
  Country: US (occurrence: US)
  Receive Date: 20130604
  Receipt Date: 20130604
  Transmission Date: 20140414
  Serious: No
  Sender: FDA-Public Use
  Company Number: US-SANOFI-AVENTIS-2013SA001595

PATIENT
  Sex: Female

DRUGS (1)
  1. LANTUS [Suspect]

REACTIONS (6)
  - Blood glucose decreased [Unknown]
  - Tremor [Unknown]
  - Nausea [Unknown]
  - Decreased appetite [Unknown]
  - Diarrhoea [Unknown]
  - Weight decreased [Unknown]
